FAERS Safety Report 10193393 (Version 1)
Quarter: 2014Q2

REPORT INFORMATION
  Report Type: Spontaneous
  Country: US (occurrence: US)
  Receive Date: 20140524
  Receipt Date: 20140524
  Transmission Date: 20141212
  Serious: No
  Sender: FDA-Public Use
  Company Number: US-SA-2013SA127818

PATIENT
  Sex: 0

DRUGS (2)
  1. LANTUS [Suspect]
     Dosage: DOSE: SLIDING SCALE
     Route: 051
  2. HUMALOG [Suspect]
     Dosage: DOSE: SLIDING SCALE
     Route: 065

REACTIONS (1)
  - Wrong drug administered [Unknown]
